FAERS Safety Report 8180737-1 (Version None)
Quarter: 2012Q1

REPORT INFORMATION
  Report Type: 
  Country: None (occurrence: None)
  Receive Date: 20120302
  Receipt Date: 20120221
  Transmission Date: 20120608
  Serious: Yes (Hospitalization)
  Sender: FDA-Public Use
  Company Number: JP-ROCHE-750172

PATIENT
  Sex: Male
  Weight: 35 kg

DRUGS (39)
  1. PREDNISOLONE [Concomitant]
     Route: 048
     Dates: start: 20090701, end: 20090707
  2. NEORAL [Concomitant]
     Indication: JUVENILE ARTHRITIS
     Dosage: DOSE FORM: PERORAL AGENT
     Route: 048
  3. ACTEMRA [Suspect]
     Indication: JUVENILE ARTHRITIS
     Route: 041
     Dates: start: 20090519, end: 20090526
  4. ACTEMRA [Suspect]
     Route: 041
     Dates: start: 20090904, end: 20091015
  5. PREDNISOLONE [Concomitant]
     Route: 048
     Dates: start: 20090624, end: 20090630
  6. PREDNISOLONE [Concomitant]
     Route: 048
     Dates: start: 20090812, end: 20090824
  7. PREDNISOLONE [Concomitant]
     Route: 048
     Dates: start: 20091029, end: 20091111
  8. PREDNISOLONE [Concomitant]
     Route: 048
     Dates: start: 20091112, end: 20091126
  9. ACTEMRA [Suspect]
     Route: 041
     Dates: start: 20090825, end: 20090825
  10. ACTEMRA [Suspect]
     Route: 041
     Dates: start: 20100916, end: 20101209
  11. PREDNISOLONE [Concomitant]
     Route: 048
     Dates: start: 20090717, end: 20090730
  12. PREDNISOLONE [Concomitant]
     Route: 048
     Dates: start: 20100202, end: 20100316
  13. PREDNISOLONE [Concomitant]
     Route: 048
     Dates: start: 20100518, end: 20100618
  14. ACTEMRA [Suspect]
     Route: 041
     Dates: start: 20091029, end: 20100904
  15. PREDNISOLONE [Concomitant]
     Route: 048
     Dates: start: 20090607, end: 20090610
  16. PREDNISOLONE [Concomitant]
     Route: 048
     Dates: start: 20090611, end: 20090616
  17. PREDNISOLONE [Concomitant]
     Route: 048
     Dates: start: 20090701, end: 20090707
  18. PREDNISOLONE [Concomitant]
     Route: 048
     Dates: start: 20090624, end: 20090630
  19. PREDNISOLONE [Concomitant]
     Indication: JUVENILE ARTHRITIS
     Route: 048
  20. PREDNISOLONE [Concomitant]
     Route: 048
     Dates: start: 20090708, end: 20090716
  21. PREDNISOLONE [Concomitant]
     Route: 048
     Dates: start: 20090708, end: 20090716
  22. PREDNISOLONE [Concomitant]
     Route: 048
     Dates: start: 20090731, end: 20090811
  23. PREDNISOLONE [Concomitant]
     Route: 048
     Dates: start: 20091001, end: 20091028
  24. PREDNISOLONE [Concomitant]
     Route: 048
     Dates: start: 20091225, end: 20100201
  25. ENALAPRIL MALEATE [Concomitant]
     Indication: PROPHYLAXIS
     Dosage: DRUG: RENIVACE(ENALAPRIL MALEATE)
     Route: 048
  26. ACTEMRA [Suspect]
     Route: 041
     Dates: start: 20090609, end: 20090812
  27. PREDNISOLONE [Concomitant]
     Route: 048
     Dates: start: 20090617, end: 20090623
  28. PREDNISOLONE [Concomitant]
     Route: 048
     Dates: start: 20090825, end: 20090903
  29. PREDNISOLONE [Concomitant]
     Route: 048
     Dates: start: 20091210, end: 20091224
  30. NORVASC [Concomitant]
     Indication: PROPHYLAXIS
     Route: 048
  31. PREDNISOLONE [Concomitant]
     Route: 048
     Dates: start: 20090904, end: 20090916
  32. PREDNISOLONE [Concomitant]
     Route: 048
     Dates: start: 20091127, end: 20091209
  33. PREDNISOLONE [Concomitant]
     Route: 048
     Dates: start: 20100417, end: 20100517
  34. SULFAMETHOXAZOLE AND TRIMETHOPRIM [Concomitant]
     Route: 048
  35. ACTEMRA [Suspect]
     Route: 041
  36. PREDNISOLONE [Concomitant]
     Route: 048
     Dates: start: 20090603, end: 20090606
  37. PREDNISOLONE [Concomitant]
     Route: 048
     Dates: start: 20090917, end: 20090930
  38. PREDNISOLONE [Concomitant]
     Route: 048
     Dates: start: 20100317, end: 20100416
  39. ENALAPRIL MALEATE [Concomitant]
     Dosage: DRUG: RENIVACE(ENALAPRIL MALEATE)
     Route: 048
     Dates: start: 20091015, end: 20100201

REACTIONS (2)
  - JUVENILE ARTHRITIS [None]
  - UPPER RESPIRATORY TRACT INFLAMMATION [None]
